FAERS Safety Report 8794001 (Version 1)
Quarter: 2012Q4

REPORT INFORMATION
  Report Type: 
  Country: US (occurrence: US)
  Receive Date: 20120917
  Receipt Date: 20120917
  Transmission Date: 20130627
  Serious: Yes (Life-Threatening, Other)
  Sender: FDA-Public Use
  Company Number: US-PFIZER INC-2012227389

PATIENT
  Age: 41 Year
  Sex: Male
  Weight: 172 kg

DRUGS (5)
  1. CHANTIX [Suspect]
     Indication: SMOKING CESSATION THERAPY
     Dosage: 0.5 mg, 1x/day
     Route: 048
     Dates: start: 200711, end: 200801
  2. ARTHROTEC [Concomitant]
     Indication: ARTHRITIS
     Dosage: UNK
  3. LYRICA [Concomitant]
     Indication: ARTHRITIS
     Dosage: UNK
  4. LORTAB [Concomitant]
     Indication: ARTHRITIS
     Dosage: UNK
  5. SOMA [Concomitant]
     Indication: ARTHRITIS
     Dosage: UNK

REACTIONS (4)
  - Pulmonary thrombosis [Unknown]
  - Thrombosis [Unknown]
  - Platelet count increased [Unknown]
  - Methylenetetrahydrofolate reductase polymorphism [Unknown]
